FAERS Safety Report 22108706 (Version 1)
Quarter: 2023Q1

REPORT INFORMATION
  Report Type: Spontaneous
  Country: FR (occurrence: FR)
  Receive Date: 20230317
  Receipt Date: 20230317
  Transmission Date: 20230418
  Serious: Yes (Hospitalization, Other)
  Sender: FDA-Public Use
  Company Number: None

PATIENT

DRUGS (5)
  1. LAMICTAL [Suspect]
     Active Substance: LAMOTRIGINE
     Indication: Depression
     Dosage: UNK
     Route: 048
     Dates: start: 20230113, end: 20230226
  2. GADOLINIUM [Concomitant]
     Active Substance: GADOLINIUM
     Indication: Magnetic resonance imaging
     Dosage: UNK
     Route: 065
     Dates: start: 20221222, end: 20221222
  3. IMOVANE [Concomitant]
     Active Substance: ZOPICLONE
     Indication: Product used for unknown indication
     Dosage: 3.75 MG, QD
     Route: 048
  4. PROZAC [Concomitant]
     Active Substance: FLUOXETINE HYDROCHLORIDE
     Indication: Depression
     Dosage: 20 MG, QD
     Route: 048
  5. FERVEX (ACETAMINOPHEN + ASCORBIC ACID + PHENIRAMINE MALEATE) [Concomitant]
     Indication: Nasopharyngitis
     Dosage: UNK
     Route: 048
     Dates: start: 20230212, end: 20230215

REACTIONS (1)
  - Drug reaction with eosinophilia and systemic symptoms [Recovering/Resolving]

NARRATIVE: CASE EVENT DATE: 20230222
